FAERS Safety Report 9865257 (Version 2)
Quarter: 2014Q1

REPORT INFORMATION
  Report Type: Spontaneous
  Country: US (occurrence: US)
  Receive Date: 20140203
  Receipt Date: 20140203
  Transmission Date: 20141002
  Serious: No
  Sender: FDA-Public Use
  Company Number: US-ALLERGAN-1300569US

PATIENT
  Sex: Female

DRUGS (5)
  1. RESTASIS [Suspect]
     Indication: DRY EYE
     Dosage: 1 GTT, BID OU
     Route: 047
     Dates: start: 201210
  2. RESTASIS [Suspect]
     Dosage: 1 GTT, QD OU
     Route: 047
     Dates: start: 201210
  3. STEROID EYEDROP [Concomitant]
     Indication: POSTOPERATIVE CARE
     Dosage: I DROP, BRIEFLY
     Route: 047
  4. ARTIFICIAL TEARS [Concomitant]
     Indication: EYE LUBRICATION THERAPY
     Dosage: 1 GTT, OU, PRN
     Route: 047
  5. BETA BLOCKER [Concomitant]
     Indication: HYPERTENSION
     Dosage: 1 TABLET PO DAILY
     Route: 048
     Dates: start: 2005

REACTIONS (3)
  - Eye pruritus [Unknown]
  - Foreign body sensation in eyes [Unknown]
  - Ocular discomfort [Unknown]
